FAERS Safety Report 9985053 (Version 1)
Quarter: 2014Q1

REPORT INFORMATION
  Report Type: Report from Study
  Country: US (occurrence: US)
  Receive Date: 20140307
  Receipt Date: 20140307
  Transmission Date: 20141002
  Serious: No
  Sender: FDA-Public Use
  Company Number: US-ABBVIE-14P-163-1186642-00

PATIENT
  Age: 46 Year
  Sex: Male

DRUGS (7)
  1. HUMIRA [Suspect]
     Indication: PSORIATIC ARTHROPATHY
     Dates: start: 20131105
  2. PREDNISONE [Concomitant]
     Indication: ARTHRITIS
     Route: 048
  3. PREDNISONE [Concomitant]
     Dosage: TAPERED TO 2.5 MG DAILY
     Dates: start: 20140116
  4. ZYRTEC [Concomitant]
     Indication: HYPERSENSITIVITY
     Dosage: EVERY NIGHT
  5. STEROID NASAL SPRAY [Concomitant]
     Indication: PRODUCT USED FOR UNKNOWN INDICATION
     Dosage: EVERY MORNING
  6. HCTZ [Concomitant]
     Indication: HYPERTENSION
     Route: 048
  7. NAPROXEN SODIUM [Concomitant]
     Indication: PAIN

REACTIONS (5)
  - Vitamin D decreased [Recovering/Resolving]
  - Arthralgia [Recovering/Resolving]
  - Inappropriate schedule of drug administration [Unknown]
  - Injection site pain [Unknown]
  - Injection site urticaria [Unknown]
